FAERS Safety Report 8702119 (Version 2)
Quarter: 2012Q4

REPORT INFORMATION
  Report Type: 
  Country: GB (occurrence: GB)
  Receive Date: 20120803
  Receipt Date: 20120831
  Transmission Date: 20130627
  Serious: Yes (Disabling, Other)
  Sender: FDA-Public Use
  Company Number: GB-PFIZER INC-2012186374

PATIENT
  Age: 89 Year
  Sex: Female
  Weight: 60 kg

DRUGS (8)
  1. LIPITOR [Suspect]
     Indication: LIPIDS ABNORMAL
     Dosage: 40 mg, 1x/day
     Route: 048
     Dates: end: 20120716
  2. LIPITOR [Suspect]
     Indication: CARDIOVASCULAR EVENT PROPHYLAXIS
  3. LIPITOR [Suspect]
     Indication: CEREBROVASCULAR ACCIDENT PROPHYLAXIS
  4. ASPIRIN [Concomitant]
     Indication: ANTIPLATELET THERAPY
     Dosage: 75 mg, UNK
     Route: 048
  5. OMEPRAZOLE [Concomitant]
     Indication: DYSPEPSIA
     Dosage: once daily
     Route: 048
  6. CLOPIDOGREL [Concomitant]
     Indication: ARTERIOSCLEROSIS
     Dosage: 75 mg, UNK
     Route: 048
  7. SYMBICORT TURBOHALER [Concomitant]
     Indication: WHEEZING
     Dosage: twice daily
  8. TERBUTALINE SULFATE [Concomitant]
     Indication: WHEEZING
     Dosage: every 4 hours

REACTIONS (6)
  - Dementia [Recovering/Resolving]
  - Confusional state [Unknown]
  - Amnesia [Recovering/Resolving]
  - Lethargy [Recovering/Resolving]
  - Urinary incontinence [Recovering/Resolving]
  - Urinary tract infection [Recovering/Resolving]
